FAERS Safety Report 11838928 (Version 1)
Quarter: 2015Q4

REPORT INFORMATION
  Report Type: Spontaneous
  Country: US (occurrence: US)
  Receive Date: 20151216
  Receipt Date: 20151216
  Transmission Date: 20160305
  Serious: No
  Sender: FDA-Public Use
  Company Number: US-AMGEN-USASP2015131815

PATIENT
  Sex: Female

DRUGS (5)
  1. METHOTREXATE (METHOTREXATE SODIUM) [Suspect]
     Active Substance: METHOTREXATE SODIUM
     Indication: PSORIASIS
     Dosage: UNK
     Route: 065
  2. ENBREL [Suspect]
     Active Substance: ETANERCEPT
     Indication: PSORIASIS
     Dosage: UNK
     Route: 065
  3. INFLIXIMAB [Suspect]
     Active Substance: INFLIXIMAB
     Indication: PSORIASIS
     Dosage: UNK
     Route: 065
  4. ADALIMUMAB [Suspect]
     Active Substance: ADALIMUMAB
     Indication: PSORIASIS
     Dosage: UNK
     Route: 065
  5. USTEKINUMAB [Suspect]
     Active Substance: USTEKINUMAB
     Indication: PSORIASIS
     Dosage: UNK
     Route: 065

REACTIONS (1)
  - Drug ineffective [Unknown]
